FAERS Safety Report 17308104 (Version 1)
Quarter: 2020Q1

REPORT INFORMATION
  Report Type: Spontaneous
  Country: AU (occurrence: AU)
  Receive Date: 20200122
  Receipt Date: 20200122
  Transmission Date: 20200409
  Serious: Yes (Other)
  Sender: FDA-Public Use
  Company Number: None

PATIENT
  Age: 30 Year
  Sex: Female
  Weight: 60 kg

DRUGS (1)
  1. IMPLANON NXT [Suspect]
     Active Substance: ETONOGESTREL
     Indication: CONTRACEPTIVE IMPLANT
     Dosage: ?          QUANTITY:1 IMPLANT ROD;OTHER FREQUENCY:EVERY 3 YEARS;?
     Route: 058
     Dates: start: 20161101, end: 20191204

REACTIONS (6)
  - Anxiety [None]
  - Feeling abnormal [None]
  - Depression [None]
  - Dysmenorrhoea [None]
  - Paranoia [None]
  - Asthenia [None]

NARRATIVE: CASE EVENT DATE: 20200101
